FAERS Safety Report 7549608-5 (Version None)
Quarter: 2011Q2

REPORT INFORMATION
  Report Type: 
  Country: None (occurrence: None)
  Receive Date: 20110615
  Receipt Date: 20110606
  Transmission Date: 20111010
  Serious: Yes (Hospitalization)
  Sender: FDA-Public Use
  Company Number: B0725687A

PATIENT
  Sex: Male

DRUGS (1)
  1. PROPAFENONE HCL [Suspect]
     Dosage: 300MG THREE TIMES PER DAY
     Route: 048
     Dates: start: 20110601, end: 20110601

REACTIONS (3)
  - DIZZINESS [None]
  - ASTHENIA [None]
  - INCORRECT DOSE ADMINISTERED [None]
